FAERS Safety Report 5476686-X (Version None)
Quarter: 2007Q4

REPORT INFORMATION
  Report Type: 
  Country: None (occurrence: None)
  Receive Date: 20071002
  Receipt Date: 20070924
  Transmission Date: 20080405
  Serious: Yes (Hospitalization)
  Sender: FDA-Public Use
  Company Number: 2007331590

PATIENT
  Age: 57 Year
  Sex: Female
  Weight: 81.6 kg

DRUGS (1)
  1. ROGAINE [Suspect]
     Indication: ALOPECIA
     Dosage: 1 ML TWICE A DAY ( 2 IN 1 D), TPOICAL
     Route: 061
     Dates: start: 20070901, end: 20070924

REACTIONS (4)
  - BLOOD PRESSURE INCREASED [None]
  - EYE PRURITUS [None]
  - HEART RATE INCREASED [None]
  - PALPITATIONS [None]
